FAERS Safety Report 6668287-2 (Version None)
Quarter: 2010Q2

REPORT INFORMATION
  Report Type: 
  Country: None (occurrence: None)
  Receive Date: 20100405
  Receipt Date: 20100405
  Transmission Date: 20101027
  Serious: Yes (Hospitalization)
  Sender: FDA-Public Use
  Company Number: None

PATIENT
  Age: 63 Year
  Sex: Male
  Weight: 62 kg

DRUGS (1)
  1. METHYLPREDNISOLONE [Suspect]
     Indication: IDIOPATHIC PULMONARY FIBROSIS
     Dosage: 60 MG BID IV
     Route: 042
     Dates: start: 20100111, end: 20100122

REACTIONS (2)
  - DELIRIUM [None]
  - PSYCHOTIC DISORDER [None]
